FAERS Safety Report 6336480-4 (Version None)
Quarter: 2009Q3

REPORT INFORMATION
  Report Type: 
  Country: None (occurrence: None)
  Receive Date: 20090901
  Receipt Date: 20090826
  Transmission Date: 20100115
  Serious: Yes (Hospitalization)
  Sender: FDA-Public Use
  Company Number: A0805240A

PATIENT
  Sex: Female
  Weight: 58 kg

DRUGS (2)
  1. SERETIDE [Suspect]
     Indication: ASTHMA
     Dosage: 2PUFF PER DAY
     Route: 055
     Dates: start: 20010101
  2. BUDECORT [Concomitant]
     Dosage: 1PUFF AT NIGHT
     Route: 055
     Dates: start: 20010101

REACTIONS (5)
  - ASTHMATIC CRISIS [None]
  - COUGH [None]
  - GENERALISED OEDEMA [None]
  - OVERDOSE [None]
  - PRURITUS [None]
